FAERS Safety Report 12608624 (Version 1)
Quarter: 2016Q3

REPORT INFORMATION
  Report Type: Spontaneous
  Country: US (occurrence: US)
  Receive Date: 20160729
  Receipt Date: 20160729
  Transmission Date: 20161109
  Serious: Yes (Hospitalization)
  Sender: FDA-Public Use
  Company Number: US-TARO-2016TAR00645

PATIENT
  Age: 70 Year
  Sex: Male
  Weight: 101.59 kg

DRUGS (15)
  1. AMIODARONE HCL TABLET 200 MG [Suspect]
     Active Substance: AMIODARONE HYDROCHLORIDE
     Indication: CARDIAC DISORDER
     Dosage: 1 TABLETS, 1X/DAY
     Route: 048
     Dates: start: 201406
  2. PERSERVISION AREDS 2 [Concomitant]
  3. LISINOPRIL. [Concomitant]
     Active Substance: LISINOPRIL
  4. SIMVASTATIN. [Concomitant]
     Active Substance: SIMVASTATIN
     Dosage: UNK, 1X/DAY
  5. PSYLLIUM [Concomitant]
     Active Substance: PLANTAGO SEED
     Dosage: 3.4 GRAMS
  6. CARVEDILOL. [Concomitant]
     Active Substance: CARVEDILOL
     Dosage: UNK, 2X/DAY
  7. METFORMIN [Concomitant]
     Active Substance: METFORMIN HYDROCHLORIDE
     Dosage: UNK, 1X/DAY
  8. FUROSEMIDE 20 ^SAN^ [Concomitant]
  9. L-LYSINE [Concomitant]
     Active Substance: LYSINE
  10. SENNA [Concomitant]
     Active Substance: SENNA LEAF\SENNOSIDES\SENNOSIDES A AND B
     Dosage: UNK, 2X/DAY
  11. BIOTIN [Concomitant]
     Active Substance: BIOTIN
     Dosage: UNK, 2X/DAY
  12. VITAMIN D3 [Concomitant]
     Active Substance: CHOLECALCIFEROL
     Dosage: UNK, 2X/DAY
  13. SELENIUM [Concomitant]
     Active Substance: SELENIUM
     Dosage: UNK, 1X/DAY
  14. AMIODARONE HCL TABLET 200 MG [Suspect]
     Active Substance: AMIODARONE HYDROCHLORIDE
     Indication: SWELLING
  15. ELIQUIS [Concomitant]
     Active Substance: APIXABAN

REACTIONS (2)
  - Dehydration [Recovered/Resolved]
  - Joint swelling [Not Recovered/Not Resolved]

NARRATIVE: CASE EVENT DATE: 20140705
